FAERS Safety Report 7873331-0 (Version None)
Quarter: 2011Q4

REPORT INFORMATION
  Report Type: 
  Country: None (occurrence: None)
  Receive Date: 20111012
  Receipt Date: 20101124
  Transmission Date: 20120403
  Serious: Yes (Other)
  Sender: FDA-Public Use
  Company Number: 2010SP062141

PATIENT
  Sex: Female

DRUGS (3)
  1. TEMODAR [Suspect]
     Indication: GLIOBLASTOMA
     Dosage: QD, QD, QD
     Dates: start: 20100101
  2. TEMODAR [Suspect]
     Indication: GLIOBLASTOMA
     Dosage: QD, QD, QD
     Dates: start: 20100901
  3. TEMODAR [Suspect]
     Indication: GLIOBLASTOMA
     Dosage: QD, QD, QD
     Dates: start: 20101023, end: 20101027

REACTIONS (1)
  - RASH [None]
